FAERS Safety Report 10728808 (Version 1)
Quarter: 2015Q1

REPORT INFORMATION
  Report Type: Spontaneous
  Country: US (occurrence: None)
  Receive Date: 20150120
  Receipt Date: 20150120
  Transmission Date: 20150721
  Serious: Yes (Disabling)
  Sender: FDA-Public Use
  Company Number: None

PATIENT
  Age: 40 Year
  Sex: Male
  Weight: 58.97 kg

DRUGS (1)
  1. DICYCLOMINE [Suspect]
     Active Substance: DICYCLOMINE HYDROCHLORIDE
     Indication: IRRITABLE BOWEL SYNDROME
     Dosage: 1 THREE TIMES DAILY TAKEN BY MOUTH
     Route: 048
     Dates: start: 20131001, end: 20141016

REACTIONS (3)
  - Posture abnormal [None]
  - Muscle contractions involuntary [None]
  - Grimacing [None]

NARRATIVE: CASE EVENT DATE: 20141016
